FAERS Safety Report 14649299 (Version 1)
Quarter: 2018Q1

REPORT INFORMATION
  Report Type: Spontaneous
  Country: US (occurrence: US)
  Receive Date: 20180316
  Receipt Date: 20180316
  Transmission Date: 20180509
  Serious: No
  Sender: FDA-Public Use
  Company Number: US-PFIZER INC-2018105925

PATIENT
  Age: 36 Year
  Sex: Female

DRUGS (2)
  1. EUCRISA [Suspect]
     Active Substance: CRISABOROLE
     Dosage: UNK, (APPLY TO AFFECTED AREA (S)) ONCE DAILY
     Route: 061
     Dates: start: 201712, end: 201801
  2. EUCRISA [Suspect]
     Active Substance: CRISABOROLE
     Dosage: UNK, TWICE DAILY
     Route: 061

REACTIONS (3)
  - Drug ineffective [Unknown]
  - Product use issue [Unknown]
  - Pruritus [Not Recovered/Not Resolved]

NARRATIVE: CASE EVENT DATE: 201712
